FAERS Safety Report 5739857-0 (Version None)
Quarter: 2008Q2

REPORT INFORMATION
  Report Type: 
  Country: None (occurrence: None)
  Receive Date: 20080513
  Receipt Date: 20080513
  Transmission Date: 20081010
  Serious: Yes (Hospitalization, Disabling)
  Sender: FDA-Public Use
  Company Number: None

PATIENT
  Sex: Male
  Weight: 76.3 kg

DRUGS (16)
  1. CETUXIMAB [Suspect]
     Indication: ADENOCARCINOMA PANCREAS
     Dosage: 995 MG EVERY 2 WEEKS IV
     Route: 042
     Dates: start: 20080319, end: 20080430
  2. GEMCITABINE [Suspect]
     Indication: ADENOCARCINOMA PANCREAS
     Dosage: 1990MG EVERY 2 WEEKS IV
     Route: 042
     Dates: start: 20080319, end: 20080430
  3. OXALIPLATIN [Suspect]
     Indication: ADENOCARCINOMA PANCREAS
     Dosage: 199 MG EVERY 2 WEEKS IV
     Route: 042
     Dates: start: 20080319, end: 20080430
  4. ACETAMINOPHEN [Concomitant]
  5. AMLODIPINE [Concomitant]
  6. AMYLASE, LIPASE, PROTEASE [Concomitant]
  7. LASIX [Concomitant]
  8. HALOPERIDOL [Concomitant]
  9. INSULIN [Concomitant]
  10. LORAZEPAM [Concomitant]
  11. LOPERAMIDE HCL [Concomitant]
  12. MORPHINE [Concomitant]
  13. PANTOPRAZOLE [Concomitant]
  14. SENNA [Concomitant]
  15. VANCOMYCIN [Concomitant]
  16. ZOLPIDEM [Concomitant]

REACTIONS (6)
  - ATELECTASIS [None]
  - BACTERIAL SEPSIS [None]
  - CATHETER RELATED INFECTION [None]
  - ELECTROLYTE IMBALANCE [None]
  - LUNG INFILTRATION [None]
  - OXYGEN SATURATION DECREASED [None]
